FAERS Safety Report 18522712 (Version 1)
Quarter: 2020Q4

REPORT INFORMATION
  Report Type: Spontaneous
  Country: BR (occurrence: BR)
  Receive Date: 20201119
  Receipt Date: 20201119
  Transmission Date: 20210114
  Serious: Yes (Other)
  Sender: FDA-Public Use
  Company Number: BR-TAKEDA-2020TUS051295

PATIENT
  Age: 70 Year
  Sex: Female
  Weight: 66 kg

DRUGS (1)
  1. DEXILANT [Suspect]
     Active Substance: DEXLANSOPRAZOLE
     Indication: EROSIVE OESOPHAGITIS
     Dosage: 60 MILLIGRAM, QD
     Route: 048
     Dates: start: 20201001

REACTIONS (6)
  - Faeces discoloured [Recovered/Resolved]
  - Blood magnesium decreased [Unknown]
  - Tachycardia [Unknown]
  - Thyroid disorder [Unknown]
  - Retinal artery occlusion [Unknown]
  - Back pain [Unknown]

NARRATIVE: CASE EVENT DATE: 20201001
